FAERS Safety Report 5678606-1 (Version None)
Quarter: 2008Q1

REPORT INFORMATION
  Report Type: 
  Country: None (occurrence: None)
  Receive Date: 20080325
  Receipt Date: 20080314
  Transmission Date: 20080703
  Serious: Yes (Other)
  Sender: FDA-Public Use
  Company Number: US-ROCHE-547016

PATIENT
  Age: 61 Year
  Sex: Female

DRUGS (12)
  1. BONIVA [Suspect]
     Indication: OSTEOPOROSIS POSTMENOPAUSAL
     Dosage: FORMULATION REPORTED AS INJECTION
     Route: 042
     Dates: start: 20070907, end: 20080207
  2. PROPYLTHIOURACIL [Concomitant]
  3. PROTONIX [Concomitant]
     Dosage: DAILY
  4. COREG CR [Concomitant]
     Dosage: DAILY
  5. COZAAR [Concomitant]
  6. POTASSIUM SUPPLEMENT [Concomitant]
  7. ZONISAMIDE [Concomitant]
  8. AMBIEN [Concomitant]
     Dosage: AT BEDTIME
  9. XANAX [Concomitant]
     Dosage: AS NEEDED
  10. MACROBID [Concomitant]
  11. SPIROLACTONE [Concomitant]
  12. COUMADIN [Concomitant]

REACTIONS (1)
  - VIRAL INFECTION [None]
